FAERS Safety Report 13427762 (Version 1)
Quarter: 2017Q2

REPORT INFORMATION
  Report Type: Report from Study
  Country: US (occurrence: US)
  Receive Date: 20170411
  Receipt Date: 20170411
  Transmission Date: 20170830
  Serious: Yes (Hospitalization)
  Sender: FDA-Public Use
  Company Number: US-BAYER-2017-062165

PATIENT
  Age: 75 Year
  Sex: Female

DRUGS (18)
  1. POTASSIUM CHLORIDE. [Concomitant]
     Active Substance: POTASSIUM CHLORIDE
     Dosage: UNK
  2. PULMICORT TURBUHALER [Concomitant]
     Active Substance: BUDESONIDE
  3. ALPHAGAN P [Concomitant]
     Active Substance: BRIMONIDINE TARTRATE
     Dosage: UNK
  4. HYDROCODONE [Concomitant]
     Active Substance: HYDROCODONE
     Dosage: UNK
  5. ADEMPAS [Suspect]
     Active Substance: RIOCIGUAT
     Indication: PULMONARY ARTERIAL HYPERTENSION
     Dosage: UNK
  6. UPTRAVI [Concomitant]
     Active Substance: SELEXIPAG
     Dosage: UNK
     Dates: end: 201703
  7. APIXABAN [Concomitant]
     Active Substance: APIXABAN
     Dosage: UNK
  8. ALBUTEROL. [Concomitant]
     Active Substance: ALBUTEROL
     Dosage: UNK
  9. NORVASC [Concomitant]
     Active Substance: AMLODIPINE BESYLATE
     Dosage: UNK
  10. RANEXA [Concomitant]
     Active Substance: RANOLAZINE
     Dosage: UNK
  11. OPSUMIT [Concomitant]
     Active Substance: MACITENTAN
     Dosage: UNK
     Dates: end: 201703
  12. BUMETANIDE. [Concomitant]
     Active Substance: BUMETANIDE
     Dosage: UNK
  13. VOLTAREN [Concomitant]
     Active Substance: DICLOFENAC SODIUM
     Dosage: UNK
  14. ADEMPAS [Suspect]
     Active Substance: RIOCIGUAT
     Indication: PULMONARY ARTERIAL HYPERTENSION
     Dosage: 2.5 MG, TID
     Route: 048
     Dates: start: 20150818, end: 201703
  15. LIPITOR [Concomitant]
     Active Substance: ATORVASTATIN CALCIUM
     Dosage: UNK
  16. LASIX [Concomitant]
     Active Substance: FUROSEMIDE
     Dosage: UNK
  17. MACROBID [Concomitant]
     Active Substance: NITROFURANTOIN\NITROFURANTOIN MONOHYDRATE
     Dosage: UNK
  18. SYSTANE [BORIC AC,CACL DIHYDR,MACROGOL,MGCL ANHYDR,KCL,PROPYL GLYC [Concomitant]
     Dosage: UNK

REACTIONS (4)
  - Dyspnoea [None]
  - Blood pressure abnormal [None]
  - Pneumonia [None]
  - Heart rate abnormal [None]

NARRATIVE: CASE EVENT DATE: 20170312
